FAERS Safety Report 8202968-4 (Version None)
Quarter: 2012Q1

REPORT INFORMATION
  Report Type: 
  Country: None (occurrence: None)
  Receive Date: 20120312
  Receipt Date: 20120306
  Transmission Date: 20120608
  Serious: Yes (Death, Hospitalization)
  Sender: FDA-Public Use
  Company Number: US-CELGENEUS-163-50794-12030584

PATIENT
  Age: 60 Year
  Sex: Female
  Weight: 75.092 kg

DRUGS (23)
  1. OXYCODONE HCL [Concomitant]
     Route: 065
  2. ZOLINZA [Suspect]
     Dosage: 400 MILLIGRAM
     Route: 048
     Dates: start: 20110903
  3. ONDANSETRON [Concomitant]
     Route: 065
  4. VIDAZA [Suspect]
     Dosage: 75 MILLIGRAM/SQ. METER
     Route: 065
     Dates: start: 20110903
  5. LORATADINE [Concomitant]
     Route: 065
  6. ALLOPURINOL [Concomitant]
     Route: 065
  7. DIPHENHYDRAMINE HCL [Concomitant]
     Route: 065
  8. LORAZEPAM [Concomitant]
     Route: 065
  9. INSULIN [Concomitant]
     Route: 065
  10. ALBUTEROL [Concomitant]
     Route: 065
  11. METOCLOPRAMIDE [Concomitant]
     Route: 065
  12. METRONIDAZOLE [Concomitant]
     Route: 041
  13. VANCOMYCIN [Concomitant]
     Route: 048
     Dates: start: 20110913
  14. MEROPENEM [Concomitant]
     Route: 048
     Dates: start: 20110913
  15. MYLOTARG [Suspect]
     Dosage: 3 MILLIGRAM/SQ. METER
     Route: 041
     Dates: start: 20110907, end: 20110907
  16. CHLORHEXIDINE GLUCONATE [Concomitant]
     Route: 065
  17. OMEPRAZOLE [Concomitant]
     Route: 065
  18. ACYCLOVIR [Concomitant]
     Route: 065
  19. ACETAMINOPHEN [Concomitant]
     Route: 065
  20. MEPERIDINE HCL [Concomitant]
     Route: 065
  21. LIDOCAINE/DIPHENHYDRA/AL-MG HYDROX [Concomitant]
     Route: 065
  22. PROCHLORPERAZINE [Concomitant]
     Route: 065
  23. VORICONAZOLE [Concomitant]
     Route: 048
     Dates: start: 20110913

REACTIONS (3)
  - ACUTE MYELOID LEUKAEMIA [None]
  - PYREXIA [None]
  - SEPSIS [None]
